FAERS Safety Report 19116619 (Version 1)
Quarter: 2021Q2

REPORT INFORMATION
  Report Type: Spontaneous
  Country: US (occurrence: US)
  Receive Date: 20210409
  Receipt Date: 20210409
  Transmission Date: 20210717
  Serious: No
  Sender: FDA-Public Use
  Company Number: US-ORGANON-O2103USA002509

PATIENT
  Sex: Female

DRUGS (12)
  1. ZOFRAN [Suspect]
     Active Substance: ONDANSETRON HYDROCHLORIDE
     Dosage: 500 MILLIGRAM
  2. IPRATROPIUM BROMIDE. [Concomitant]
     Active Substance: IPRATROPIUM BROMIDE
  3. DUPIXENT [Suspect]
     Active Substance: DUPILUMAB
     Indication: NASAL POLYPS
     Dosage: 300 MILLIGRAM, QOW
     Route: 058
  4. PROTONIX [OMEPRAZOLE] [Suspect]
     Active Substance: OMEPRAZOLE
     Dosage: 10 MILLIGRAM
  5. ATIVAN [Concomitant]
     Active Substance: LORAZEPAM
  6. CALCIUM [Suspect]
     Active Substance: CALCIUM
     Dosage: 4 MILLIGRAM
  7. ZYRTEC?D [Suspect]
     Active Substance: CETIRIZINE HYDROCHLORIDE\PSEUDOEPHEDRINE HYDROCHLORIDE
     Dosage: 40 MILLIGRAM
  8. FERROUS GLUCONATE [Concomitant]
     Active Substance: FERROUS GLUCONATE
  9. CALCIUM/VITAMIN D [CALCIUM;ERGOCALCIFEROL] [Suspect]
     Active Substance: CALCIUM\ERGOCALCIFEROL
     Dosage: UNK
  10. BENADRYL DM [Concomitant]
     Active Substance: DEXTROMETHORPHAN HYDROBROMIDE\DIPHENHYDRAMINE HYDROCHLORIDE
  11. SINGULAIR [Suspect]
     Active Substance: MONTELUKAST SODIUM
     Dosage: 10 MILLIGRAM
     Route: 048
  12. LEVOTHYROXINE SODIUM. [Suspect]
     Active Substance: LEVOTHYROXINE SODIUM
     Dosage: 40 MILLIGRAM

REACTIONS (3)
  - Oral herpes [Unknown]
  - Ocular discomfort [Unknown]
  - Rash [Unknown]
